FAERS Safety Report 19590750 (Version 2)
Quarter: 2021Q3

REPORT INFORMATION
  Report Type: Spontaneous
  Country: US (occurrence: US)
  Receive Date: 20210721
  Receipt Date: 20210817
  Transmission Date: 20211014
  Serious: Yes (Life-Threatening, Hospitalization, Other)
  Sender: FDA-Public Use
  Company Number: US-AMGEN-USASP2021107796

PATIENT

DRUGS (1)
  1. PEGFILGRASTIM [Suspect]
     Active Substance: PEGFILGRASTIM
     Indication: PROPHYLAXIS
     Dosage: UNK
     Route: 065

REACTIONS (17)
  - Neutropenia [Unknown]
  - Asthenia [Unknown]
  - Sepsis [Unknown]
  - Hypertensive crisis [Unknown]
  - Unevaluable event [Unknown]
  - Diarrhoea [Unknown]
  - Inappropriate schedule of product administration [Unknown]
  - Chest pain [Unknown]
  - Animal bite [Unknown]
  - Rash [Unknown]
  - Infection [Unknown]
  - Febrile neutropenia [Unknown]
  - Dyspnoea [Unknown]
  - Cellulitis [Unknown]
  - Large intestine perforation [Unknown]
  - Gastroenteritis [Unknown]
  - Road traffic accident [Unknown]
